FAERS Safety Report 24292914 (Version 1)
Quarter: 2024Q3

REPORT INFORMATION
  Report Type: Spontaneous
  Country: US (occurrence: None)
  Receive Date: 20240906
  Receipt Date: 20240906
  Transmission Date: 20241017
  Serious: No
  Sender: DOMPE FARMACEUTICI
  Company Number: US-FARMAPROD-202311-3247

PATIENT
  Sex: Female
  Weight: 85.28 kg

DRUGS (2)
  1. OXERVATE [Suspect]
     Active Substance: CENEGERMIN-BKBJ
     Indication: Corneal degeneration
     Route: 047
     Dates: start: 20231013
  2. NEOMYCIN-POLYMYXIN-DEXAMETH [Concomitant]

REACTIONS (4)
  - Product use complaint [Unknown]
  - Product dose omission issue [Unknown]
  - Product storage error [Unknown]
  - Off label use [Unknown]
